FAERS Safety Report 9409784 (Version 1)
Quarter: 2013Q2

REPORT INFORMATION
  Report Type: Spontaneous
  Country: JP (occurrence: None)
  Receive Date: 20130620
  Receipt Date: 20130620
  Transmission Date: 20140414
  Serious: Yes (Hospitalization, Other)
  Sender: FDA-Public Use
  Company Number: VAL_02568_2013

PATIENT
  Age: 28 Year
  Sex: Female

DRUGS (2)
  1. CARBAMAZEPINE (CARBAMAZEPINE) [Suspect]
     Indication: EPILEPSY
     Dosage: DF
  2. CARBAMAZEPINE (CARBAMAZEPINE) [Suspect]
     Indication: OFF LABEL USE
     Dosage: DF

REACTIONS (3)
  - Drug reaction with eosinophilia and systemic symptoms [None]
  - Human herpesvirus 6 infection [None]
  - Cytomegalovirus infection [None]
